FAERS Safety Report 5395272-3 (Version None)
Quarter: 2007Q3

REPORT INFORMATION
  Report Type: 
  Country: None (occurrence: None)
  Receive Date: 20070724
  Receipt Date: 20070717
  Transmission Date: 20080115
  Serious: Yes (Hospitalization)
  Sender: FDA-Public Use
  Company Number: US-AMGEN-STX227392

PATIENT
  Sex: Female
  Weight: 118 kg

DRUGS (7)
  1. ENBREL [Suspect]
     Indication: PSORIATIC ARTHROPATHY
     Route: 058
     Dates: start: 20040407
  2. ENBREL [Suspect]
     Indication: PSORIASIS
  3. LIPITOR [Concomitant]
     Dates: start: 19960101
  4. ZANTAC 150 [Concomitant]
     Dates: start: 19960101
  5. HYDROCHLOROTHIAZIDE [Concomitant]
     Dates: start: 19960101
  6. SOMA [Concomitant]
     Dates: start: 20050101
  7. LORAZEPAM [Concomitant]
     Dates: start: 20050101, end: 20050101

REACTIONS (2)
  - OSTEOARTHRITIS [None]
  - PAIN IN EXTREMITY [None]
